FAERS Safety Report 17295776 (Version 1)
Quarter: 2020Q1

REPORT INFORMATION
  Report Type: Spontaneous
  Country: US (occurrence: US)
  Receive Date: 20200121
  Receipt Date: 20200121
  Transmission Date: 20200409
  Serious: No
  Sender: FDA-Public Use
  Company Number: US-JNJFOC-20200128406

PATIENT
  Age: 60 Year
  Sex: Female

DRUGS (2)
  1. LEVAQUIN [Suspect]
     Active Substance: LEVOFLOXACIN
     Route: 048
     Dates: start: 20100623
  2. LEVAQUIN [Suspect]
     Active Substance: LEVOFLOXACIN
     Indication: COUGH
     Route: 048

REACTIONS (1)
  - Productive cough [Not Recovered/Not Resolved]

NARRATIVE: CASE EVENT DATE: 20100322
